FAERS Safety Report 6228611-1 (Version None)
Quarter: 2009Q2

REPORT INFORMATION
  Report Type: 
  Country: None (occurrence: None)
  Receive Date: 20090612
  Receipt Date: 20090603
  Transmission Date: 20091009
  Serious: Yes (Hospitalization)
  Sender: FDA-Public Use
  Company Number: IT-ABBOTT-09P-083-0577578-00

PATIENT
  Sex: Male

DRUGS (1)
  1. MACLADIN SUSPENSION [Suspect]
     Indication: ABSCESS LIMB
     Route: 048
     Dates: start: 20090517, end: 20090518

REACTIONS (6)
  - BRONCHITIS [None]
  - ERYTHEMA [None]
  - OEDEMA PERIPHERAL [None]
  - PAIN IN EXTREMITY [None]
  - PETECHIAE [None]
  - RASH [None]
